FAERS Safety Report 24867212 (Version 2)
Quarter: 2025Q1

REPORT INFORMATION
  Report Type: Spontaneous
  Country: PT (occurrence: PT)
  Receive Date: 20250121
  Receipt Date: 20250129
  Transmission Date: 20250409
  Serious: Yes (Hospitalization, Other)
  Sender: BAYER HEALTHCARE PHARMACEUTICALS INC.
  Company Number: PT-BAYER-2025A006052

PATIENT
  Age: 72 Year
  Sex: Female

DRUGS (2)
  1. ADEMPAS [Suspect]
     Active Substance: RIOCIGUAT
     Indication: Pulmonary hypertension
     Dates: start: 202305
  2. BOSENTAN [Concomitant]
     Active Substance: BOSENTAN
     Dates: start: 202404

REACTIONS (5)
  - Carotid endarterectomy [None]
  - Chest pain [None]
  - Cardiac arrest [None]
  - Ventricular fibrillation [None]
  - Coronary artery thrombosis [None]

NARRATIVE: CASE EVENT DATE: 20241201
